FAERS Safety Report 14675654 (Version 2)
Quarter: 2018Q1

REPORT INFORMATION
  Report Type: Report from Study
  Country: US (occurrence: US)
  Receive Date: 20180323
  Receipt Date: 20180329
  Transmission Date: 20180509
  Serious: No
  Sender: FDA-Public Use
  Company Number: US-AMGEN-USASL2018038359

PATIENT
  Age: 73 Year
  Sex: Female

DRUGS (2)
  1. ENBREL [Suspect]
     Active Substance: ETANERCEPT
     Indication: RHEUMATOID ARTHRITIS
     Dosage: 50 MG, UNK
     Route: 065
     Dates: start: 20180316
  2. METHAPYRILENE. [Suspect]
     Active Substance: METHAPYRILENE
     Indication: PRODUCT USED FOR UNKNOWN INDICATION
     Dosage: 250 MG, UNK
     Route: 042
     Dates: start: 20180316

REACTIONS (4)
  - Fatigue [Unknown]
  - Dizziness [Unknown]
  - Asthenia [Unknown]
  - Swelling face [Unknown]

NARRATIVE: CASE EVENT DATE: 20180317
